FAERS Safety Report 12569208 (Version 1)
Quarter: 2016Q3

REPORT INFORMATION
  Report Type: Report from Study
  Country: PT (occurrence: PT)
  Receive Date: 20160719
  Receipt Date: 20160719
  Transmission Date: 20161109
  Serious: Yes (Hospitalization, Other)
  Sender: FDA-Public Use
  Company Number: PHHY2015PT009424

PATIENT
  Age: 27 Year
  Sex: Female
  Weight: 61 kg

DRUGS (3)
  1. GILENYA [Suspect]
     Active Substance: FINGOLIMOD HYDROCHLORIDE
     Indication: RELAPSING-REMITTING MULTIPLE SCLEROSIS
     Dosage: 0.5 MG, QD
     Route: 048
     Dates: start: 20150109, end: 20150420
  2. INTERFERON BETA-1A [Suspect]
     Active Substance: INTERFERON BETA-1A
     Indication: PRODUCT USED FOR UNKNOWN INDICATION
     Route: 065
  3. GILENYA [Suspect]
     Active Substance: FINGOLIMOD HYDROCHLORIDE
     Dosage: UNK
     Route: 065
     Dates: start: 20160706

REACTIONS (13)
  - Premature delivery [Unknown]
  - Bradycardia [Unknown]
  - Atrioventricular block first degree [Unknown]
  - Maternal exposure during pregnancy [Unknown]
  - Ataxia [Unknown]
  - Facial paralysis [Recovered/Resolved]
  - Tremor [Unknown]
  - Atrioventricular block second degree [Unknown]
  - Feeling abnormal [Unknown]
  - Electrocardiogram abnormal [Recovered/Resolved]
  - Hypoaesthesia [Recovered/Resolved]
  - Multiple sclerosis relapse [Recovering/Resolving]
  - Asthenia [Unknown]

NARRATIVE: CASE EVENT DATE: 20150125
